FAERS Safety Report 23187149 (Version 1)
Quarter: 2023Q4

REPORT INFORMATION
  Report Type: Spontaneous
  Country: US (occurrence: US)
  Receive Date: 20231115
  Receipt Date: 20231115
  Transmission Date: 20240110
  Serious: No
  Sender: FDA-Public Use
  Company Number: US-SA-SAC20231113000173

PATIENT
  Sex: Male
  Weight: 106.59 kg

DRUGS (4)
  1. DUPIXENT [Suspect]
     Active Substance: DUPILUMAB
     Indication: Asthma
     Dosage: 300 MG, QOW
     Route: 058
  2. SPIRIVA [Concomitant]
     Active Substance: TIOTROPIUM BROMIDE MONOHYDRATE
     Dosage: UNK
  3. DULERA [Concomitant]
     Active Substance: FORMOTEROL FUMARATE DIHYDRATE\MOMETASONE FUROATE
     Dosage: UNK
  4. PROAIR DIGIHALER [Concomitant]
     Active Substance: ALBUTEROL SULFATE
     Dosage: UNK

REACTIONS (1)
  - Dyspnoea [Unknown]
